FAERS Safety Report 16705836 (Version 4)
Quarter: 2020Q1

REPORT INFORMATION
  Report Type: Report from Study
  Country: JP (occurrence: JP)
  Receive Date: 20190815
  Receipt Date: 20200124
  Transmission Date: 20200409
  Serious: Yes (Death, Hospitalization, Other)
  Sender: FDA-Public Use
  Company Number: JP-009507513-1906JPN000490J

PATIENT
  Age: 38 Year
  Sex: Female
  Weight: 99 kg

DRUGS (12)
  1. REBAMIPIDE [Concomitant]
     Active Substance: REBAMIPIDE
     Dosage: UNK
     Route: 048
     Dates: start: 20190208
  2. MAGMITT [Concomitant]
     Active Substance: MAGNESIUM OXIDE
     Dosage: UNK
     Route: 048
     Dates: start: 20190220
  3. PICILLIBACTA [Concomitant]
     Active Substance: AMPICILLIN SODIUM\SULBACTAM SODIUM
     Dosage: UNK
     Route: 042
     Dates: start: 20190516
  4. PEMBROLIZUMAB. [Suspect]
     Active Substance: PEMBROLIZUMAB
     Indication: ENDOMETRIAL CANCER
     Dosage: 200 MILLIGRAM, Q3W
     Route: 041
     Dates: start: 20190529, end: 20190529
  5. BIOFERMIN R [Concomitant]
     Active Substance: DIETARY SUPPLEMENT\PROBIOTICS
     Dosage: UNK
     Route: 048
     Dates: start: 20190425
  6. CYMBALTA [Concomitant]
     Active Substance: DULOXETINE HYDROCHLORIDE
     Dosage: UNK
     Route: 048
     Dates: start: 20190523
  7. CALONAL [Concomitant]
     Active Substance: ACETAMINOPHEN
     Dosage: UNK
     Route: 048
     Dates: start: 20190218
  8. TRAMCET [Concomitant]
     Active Substance: ACETAMINOPHEN\TRAMADOL
     Dosage: UNK
     Route: 048
     Dates: start: 20190509
  9. AMLODIPINE [Concomitant]
     Active Substance: AMLODIPINE BESYLATE
     Dosage: UNK
     Route: 048
     Dates: start: 20190128
  10. LOXOPROFEN [Concomitant]
     Active Substance: LOXOPROFEN
     Dosage: UNK
     Route: 048
     Dates: start: 20190206
  11. BELSOMRA [Concomitant]
     Active Substance: SUVOREXANT
     Dosage: UNK
     Route: 048
     Dates: start: 20190510
  12. OLANZAPINE. [Concomitant]
     Active Substance: OLANZAPINE
     Dosage: UNK
     Route: 048
     Dates: start: 20190520

REACTIONS (3)
  - Malignant neoplasm progression [Fatal]
  - Renal failure [Fatal]
  - Pancreatitis acute [Recovering/Resolving]

NARRATIVE: CASE EVENT DATE: 2019
